FAERS Safety Report 6363617-3 (Version None)
Quarter: 2009Q3

REPORT INFORMATION
  Report Type: 
  Country: None (occurrence: None)
  Receive Date: 20090919
  Receipt Date: 20090630
  Transmission Date: 20100115
  Serious: No
  Sender: FDA-Public Use
  Company Number: US-ABBOTT-09P-163-0582967-00

PATIENT
  Sex: Male

DRUGS (6)
  1. HUMIRA [Suspect]
     Indication: ANKYLOSING SPONDYLITIS
     Route: 058
     Dates: start: 20081201
  2. FENTANYL [Concomitant]
     Indication: ANKYLOSING SPONDYLITIS
     Dosage: PATCH
     Route: 062
     Dates: start: 20090101
  3. FENTANYL [Concomitant]
     Indication: INFLAMMATION
  4. AVANDIA [Concomitant]
     Indication: DIABETES MELLITUS
  5. GLUCOTROL [Concomitant]
     Indication: DIABETES MELLITUS
  6. LISINOPRIL [Concomitant]
     Indication: HYPERTENSION

REACTIONS (3)
  - INFLAMMATION [None]
  - NAUSEA [None]
  - PAIN [None]
